FAERS Safety Report 10012906 (Version 1)
Quarter: 2014Q1

REPORT INFORMATION
  Report Type: Spontaneous
  Country: US (occurrence: US)
  Receive Date: 20140314
  Receipt Date: 20140314
  Transmission Date: 20141002
  Serious: No
  Sender: FDA-Public Use
  Company Number: US-ASTRAZENECA-2013SE59142

PATIENT
  Sex: Male

DRUGS (1)
  1. ZOMIG [Suspect]
     Route: 048

REACTIONS (4)
  - Sleep disorder due to a general medical condition [Unknown]
  - Pain [Unknown]
  - Fatigue [Unknown]
  - Headache [Unknown]
